FAERS Safety Report 4524408-9 (Version None)
Quarter: 2004Q4

REPORT INFORMATION
  Report Type: 
  Country: None (occurrence: None)
  Receive Date: 20041117
  Receipt Date: 20041105
  Transmission Date: 20050328
  Serious: Yes (Hospitalization)
  Sender: FDA-Public Use
  Company Number: 2004UW20937

PATIENT
  Age: 53 Year
  Sex: Female
  Weight: 90.718 kg

DRUGS (2)
  1. CRESTOR [Suspect]
     Indication: HYPERCHOLESTEROLAEMIA
     Dosage: 10 MG QD PO
     Route: 048
     Dates: start: 20031203, end: 20041002
  2. MICARDIA/HYDROCHLOROTHIAZIDE [Concomitant]

REACTIONS (1)
  - RHABDOMYOLYSIS [None]
